FAERS Safety Report 16399369 (Version 1)
Quarter: 2019Q2

REPORT INFORMATION
  Report Type: Spontaneous
  Country: US (occurrence: US)
  Receive Date: 20190501
  Receipt Date: 20190501
  Transmission Date: 20190711
  Serious: Yes (Hospitalization)
  Sender: FDA-Public Use
  Company Number: None

PATIENT
  Age: 82 Year
  Sex: Male
  Weight: 77 kg

DRUGS (5)
  1. DABIGATRAN [Suspect]
     Active Substance: DABIGATRAN
     Indication: ATRIAL FIBRILLATION
     Route: 048
     Dates: start: 20180601, end: 20190414
  2. DABIGATRAN [Suspect]
     Active Substance: DABIGATRAN
     Indication: TRANSIENT ISCHAEMIC ATTACK
     Route: 048
     Dates: start: 20130601, end: 20190414
  3. DABIGATRAN [Suspect]
     Active Substance: DABIGATRAN
     Indication: PERIPHERAL VASCULAR DISORDER
     Route: 048
     Dates: start: 20130601, end: 20190414
  4. DABIGATRAN [Suspect]
     Active Substance: DABIGATRAN
     Indication: CAROTID ARTERY STENOSIS
     Route: 048
     Dates: start: 20130601, end: 20190414
  5. DABIGATRAN [Suspect]
     Active Substance: DABIGATRAN
     Indication: VASCULAR DEVICE USER
     Route: 048
     Dates: start: 20130601, end: 20190414

REACTIONS (6)
  - Gastric haemorrhage [None]
  - Packed red blood cell transfusion [None]
  - Anaemia [None]
  - Gastritis erosive [None]
  - Acquired oesophageal web [None]
  - Hiatus hernia [None]

NARRATIVE: CASE EVENT DATE: 20190414
